FAERS Safety Report 4767097-0 (Version None)
Quarter: 2005Q3

REPORT INFORMATION
  Report Type: 
  Country: None (occurrence: None)
  Receive Date: 20050906
  Receipt Date: 20050823
  Transmission Date: 20060218
  Serious: Yes (Other)
  Sender: FDA-Public Use
  Company Number: HQWYE064523AUG05

PATIENT
  Sex: Male

DRUGS (2)
  1. BENEFIX [Suspect]
     Indication: ANTI FACTOR IX ANTIBODY POSITIVE
     Dosage: 100 IU 1X PER 1 DAY
  2. BENEFIX [Suspect]
     Indication: OFF LABEL USE
     Dosage: 100 IU 1X PER 1 DAY

REACTIONS (2)
  - DRUG INEFFECTIVE FOR UNAPPROVED INDICATION [None]
  - LABORATORY TEST ABNORMAL [None]
